FAERS Safety Report 5679399-4 (Version None)
Quarter: 2008Q1

REPORT INFORMATION
  Report Type: 
  Country: None (occurrence: None)
  Receive Date: 20080325
  Receipt Date: 20080314
  Transmission Date: 20080703
  Serious: Yes (Other)
  Sender: FDA-Public Use
  Company Number: AR-PFIZER INC-2008009172

PATIENT
  Age: 80 Year
  Sex: Male
  Weight: 87 kg

DRUGS (13)
  1. LIPITOR [Suspect]
     Dosage: DAILY DOSE:20MG-FREQ:DAILY
     Route: 048
  2. LOPID [Interacting]
     Indication: LIPIDS INCREASED
     Route: 048
  3. EVION [Concomitant]
     Route: 048
  4. CALCIUM [Concomitant]
     Route: 048
  5. SANDIMMUNE [Concomitant]
     Route: 048
  6. ROSIGLITAZONE [Concomitant]
     Route: 048
  7. IRON [Concomitant]
     Route: 048
  8. DUTASTERIDE [Concomitant]
     Route: 048
  9. LASIX [Concomitant]
     Route: 048
  10. DIAMICRON [Concomitant]
     Route: 048
  11. ASPIRIN [Concomitant]
     Route: 048
  12. TOTAL MAGNESIANO [Concomitant]
     Route: 048
  13. VITAMIN E [Concomitant]
     Route: 048

REACTIONS (9)
  - BLINDNESS [None]
  - DIABETES MELLITUS [None]
  - DRUG INTERACTION [None]
  - FATIGUE [None]
  - GAIT DISTURBANCE [None]
  - ILL-DEFINED DISORDER [None]
  - MUSCLE SPASMS [None]
  - PAIN IN EXTREMITY [None]
  - SOMNOLENCE [None]
